FAERS Safety Report 25914929 (Version 1)
Quarter: 2025Q4

REPORT INFORMATION
  Report Type: Spontaneous
  Country: EU (occurrence: EU)
  Receive Date: 20251013
  Receipt Date: 20251013
  Transmission Date: 20260117
  Serious: Yes (Other)
  Sender: SANDOZ
  Company Number: EU-SANDOZ-NVSC2023PT131915

PATIENT
  Sex: Female

DRUGS (1)
  1. HYRIMOZ [Suspect]
     Active Substance: ADALIMUMAB-ADAZ
     Indication: Hidradenitis
     Dosage: 40 MG, QW
     Route: 065

REACTIONS (5)
  - Papule [Unknown]
  - Skin lesion inflammation [Unknown]
  - Scar [Unknown]
  - Product substitution issue [Unknown]
  - Drug ineffective [Unknown]
